FAERS Safety Report 17464654 (Version 1)
Quarter: 2020Q1

REPORT INFORMATION
  Report Type: Spontaneous
  Country: RO (occurrence: RO)
  Receive Date: 20200226
  Receipt Date: 20200226
  Transmission Date: 20200409
  Serious: Yes (Hospitalization, Other)
  Sender: FDA-Public Use
  Company Number: RO-PFIZER INC-2019515809

PATIENT
  Age: 47 Year
  Sex: Male
  Weight: 75 kg

DRUGS (8)
  1. EQUILIBRA [Concomitant]
     Dosage: UNK
  2. CALCIVIT [Concomitant]
     Dosage: UNK
  3. NOLPAZA [Concomitant]
     Active Substance: PANTOPRAZOLE SODIUM
     Dosage: UNK
  4. CLINDAMICIN [Concomitant]
     Active Substance: CLINDAMYCIN
     Dosage: UNK
  5. PRESTARIUM [Concomitant]
     Active Substance: PERINDOPRIL
     Dosage: UNK
  6. EUTIROX [Concomitant]
     Active Substance: LEVOTHYROXINE SODIUM
     Dosage: UNK
  7. INLYTA [Suspect]
     Active Substance: AXITINIB
     Indication: METASTATIC RENAL CELL CARCINOMA
     Dosage: 5 MG, UNK
     Dates: start: 20191015, end: 20200111
  8. ENTEROL [Concomitant]
     Dosage: UNK

REACTIONS (6)
  - Cough [Unknown]
  - Haemoptysis [Recovered/Resolved]
  - Salivary hypersecretion [Unknown]
  - Oedema [Recovered/Resolved]
  - Mucosal inflammation [Unknown]
  - Sputum purulent [Recovered/Resolved]

NARRATIVE: CASE EVENT DATE: 20191020
